FAERS Safety Report 16749211 (Version 2)
Quarter: 2020Q3

REPORT INFORMATION
  Report Type: Spontaneous
  Country: AU (occurrence: AU)
  Receive Date: 20190828
  Receipt Date: 20200813
  Transmission Date: 20201102
  Serious: Yes (Other)
  Sender: FDA-Public Use
  Company Number: AU-SUN PHARMACEUTICAL INDUSTRIES LTD-2019R1-217880

PATIENT
  Age: 68 Year
  Sex: Male

DRUGS (9)
  1. METOPROLOL. [Concomitant]
     Active Substance: METOPROLOL
     Indication: IMMUNOSUPPRESSANT DRUG THERAPY
     Dosage: 25 MILLIGRAM, DAILY
     Route: 065
  2. LEFLUNOMIDE. [Suspect]
     Active Substance: LEFLUNOMIDE
     Indication: IMMUNOSUPPRESSANT DRUG THERAPY
     Dosage: 25 MILLIGRAM, DAILY
     Route: 065
  3. PYRIMETHAMINE [Concomitant]
     Active Substance: PYRIMETHAMINE
     Indication: IMMUNOSUPPRESSANT DRUG THERAPY
     Dosage: 25 MILLIGRAM, DAILY
     Route: 065
  4. TACROLIMUS. [Suspect]
     Active Substance: TACROLIMUS
     Indication: IMMUNOSUPPRESSANT DRUG THERAPY
     Dosage: 2 MILLIGRAM, DAILY
     Route: 065
  5. DARBEPOETIN [Concomitant]
     Active Substance: DARBEPOETIN ALFA
     Indication: IMMUNOSUPPRESSANT DRUG THERAPY
     Dosage: 40 MICROGRAM, MONTHLY
     Route: 065
  6. IRBESARTAN. [Concomitant]
     Active Substance: IRBESARTAN
     Indication: IMMUNOSUPPRESSANT DRUG THERAPY
     Dosage: 150 MILLIGRAM, DAILY
     Route: 065
  7. WARFARIN [Concomitant]
     Active Substance: WARFARIN
     Indication: IMMUNOSUPPRESSANT DRUG THERAPY
     Dosage: 2 MILLIGRAM, DAILY
     Route: 065
  8. PREDNISONE. [Suspect]
     Active Substance: PREDNISONE
     Indication: IMMUNOSUPPRESSANT DRUG THERAPY
     Dosage: 7.5 MILLIGRAM, DAILY
     Route: 065
  9. ATORVASTATIN [Concomitant]
     Active Substance: ATORVASTATIN
     Indication: IMMUNOSUPPRESSANT DRUG THERAPY
     Dosage: 10 MILLIGRAM, DAILY
     Route: 065

REACTIONS (2)
  - Colitis [Recovering/Resolving]
  - Enterocutaneous fistula [Recovering/Resolving]
